FAERS Safety Report 20746132 (Version 1)
Quarter: 2022Q2

REPORT INFORMATION
  Report Type: Report from Study
  Country: US (occurrence: US)
  Receive Date: 20220425
  Receipt Date: 20220425
  Transmission Date: 20220720
  Serious: No
  Sender: FDA-Public Use
  Company Number: US-MIRM-000335

PATIENT
  Age: 2 Year
  Sex: Male
  Weight: 12.247 kg

DRUGS (4)
  1. LIVMARLI [Suspect]
     Active Substance: MARALIXIBAT CHLORIDE
     Indication: Alagille syndrome
     Route: 048
     Dates: start: 202112
  2. 1326766 (GLOBALC3Sep19): Lactulose [Concomitant]
     Route: 048
  3. 1262333 (GLOBALC3Sep19): Aspirin [Concomitant]
     Route: 048
  4. 1328777 (GLOBALC3Sep19): Ursodiol [Concomitant]
     Route: 048

REACTIONS (2)
  - Ear infection [Unknown]
  - Pruritus [Unknown]

NARRATIVE: CASE EVENT DATE: 20220126
